FAERS Safety Report 20458485 (Version 3)
Quarter: 2022Q1

REPORT INFORMATION
  Report Type: Spontaneous
  Country: US (occurrence: US)
  Receive Date: 20220211
  Receipt Date: 20220315
  Transmission Date: 20220423
  Serious: Yes (Other)
  Sender: FDA-Public Use
  Company Number: US-GLAXOSMITHKLINE-US2022AMR021280

PATIENT
  Sex: Female

DRUGS (2)
  1. ZEJULA [Suspect]
     Active Substance: NIRAPARIB
     Indication: Ovarian cancer
     Dosage: 100 MG, QD
     Route: 048
     Dates: start: 20200901
  2. ZEJULA [Suspect]
     Active Substance: NIRAPARIB
     Dosage: 100 MG, QD (AM)
     Route: 048
     Dates: start: 20200901

REACTIONS (6)
  - Syncope [Unknown]
  - Carbohydrate antigen 125 increased [Recovering/Resolving]
  - Breast cyst [Recovering/Resolving]
  - Knee arthroplasty [Unknown]
  - Fall [Unknown]
  - Product dose omission in error [Unknown]
